FAERS Safety Report 5802775-3 (Version None)
Quarter: 2008Q3

REPORT INFORMATION
  Report Type: 
  Country: None (occurrence: None)
  Receive Date: 20080703
  Receipt Date: 20080623
  Transmission Date: 20090109
  Serious: No
  Sender: FDA-Public Use
  Company Number: 20085311

PATIENT
  Age: 16 Year
  Sex: Female

DRUGS (2)
  1. LIORESAL [Suspect]
     Indication: MUSCLE SPASTICITY
     Dosage: DAILY MCG, INTRATHECAL
     Route: 037
  2. UNSPECIFIED CONTRACEPTIVE [Concomitant]

REACTIONS (1)
  - MENORRHAGIA [None]
